FAERS Safety Report 18024742 (Version 1)
Quarter: 2020Q3

REPORT INFORMATION
  Report Type: Spontaneous
  Country: US (occurrence: US)
  Receive Date: 20200715
  Receipt Date: 20200715
  Transmission Date: 20201103
  Serious: Yes (Death)
  Sender: FDA-Public Use
  Company Number: None

PATIENT
  Age: 58 Year
  Sex: Male

DRUGS (12)
  1. REMDESIVIR. [Suspect]
     Active Substance: REMDESIVIR
     Indication: COVID-19 PNEUMONIA
     Route: 042
     Dates: start: 20200710, end: 20200713
  2. ETOMIDATE. [Concomitant]
     Active Substance: ETOMIDATE
     Dates: start: 20200714, end: 20200714
  3. INSULIN DETERMIR [Concomitant]
     Dates: start: 20200708, end: 20200714
  4. METOPROLOL. [Concomitant]
     Active Substance: METOPROLOL
     Dates: start: 20200708, end: 20200714
  5. DEXAMETHASONE. [Concomitant]
     Active Substance: DEXAMETHASONE
     Dates: start: 20200709, end: 20200714
  6. ROCURONIUM [Concomitant]
     Active Substance: ROCURONIUM BROMIDE
     Dates: start: 20200714, end: 20200714
  7. ATORVASTATIN [Concomitant]
     Active Substance: ATORVASTATIN
     Dates: start: 20200709, end: 20200714
  8. AMIODARONE [Concomitant]
     Active Substance: AMIODARONE
     Dates: start: 20200714, end: 20200714
  9. ENOXAPARIN [Concomitant]
     Active Substance: ENOXAPARIN
     Dates: start: 20200708, end: 20200714
  10. INSULIN LISPRO [Concomitant]
     Active Substance: INSULIN LISPRO
     Dates: start: 20200708, end: 20200714
  11. MIDAZOLAM. [Concomitant]
     Active Substance: MIDAZOLAM
     Dates: start: 20200714, end: 20200714
  12. FUROSEMIDE. [Concomitant]
     Active Substance: FUROSEMIDE
     Dates: start: 20200710, end: 20200714

REACTIONS (9)
  - Agitation [None]
  - Obstructive airways disorder [None]
  - Lung infiltration [None]
  - Respiratory failure [None]
  - Acute pulmonary oedema [None]
  - Respiratory rate decreased [None]
  - Atrial fibrillation [None]
  - Rales [None]
  - Pulse absent [None]

NARRATIVE: CASE EVENT DATE: 20200714
